FAERS Safety Report 7322415-4 (Version None)
Quarter: 2011Q1

REPORT INFORMATION
  Report Type: 
  Country: None (occurrence: None)
  Receive Date: 20110301
  Receipt Date: 20110217
  Transmission Date: 20110831
  Serious: Yes (Hospitalization)
  Sender: FDA-Public Use
  Company Number: 2008BI016937

PATIENT
  Age: 48 Year
  Sex: Female

DRUGS (4)
  1. DETROL LA [Concomitant]
     Indication: URINARY INCONTINENCE
  2. OXYBUTYNIN [Concomitant]
     Indication: URINARY INCONTINENCE
  3. TYSABRI [Suspect]
     Indication: MULTIPLE SCLEROSIS
     Dates: start: 20071015
  4. OXYTROL [Concomitant]
     Indication: URINARY INCONTINENCE

REACTIONS (10)
  - FALL [None]
  - TREMOR [None]
  - POOR VENOUS ACCESS [None]
  - ASPIRATION [None]
  - PNEUMONIA [None]
  - BALANCE DISORDER [None]
  - CONTUSION [None]
  - RIB FRACTURE [None]
  - HEAD TITUBATION [None]
  - BLOOD POTASSIUM DECREASED [None]
